FAERS Safety Report 13986423 (Version 1)
Quarter: 2017Q3

REPORT INFORMATION
  Report Type: Spontaneous
  Country: US (occurrence: US)
  Receive Date: 20170919
  Receipt Date: 20170919
  Transmission Date: 20171128
  Serious: Yes (Other)
  Sender: FDA-Public Use
  Company Number: US-BAYER-US-2006-001958

PATIENT
  Age: 43 Year
  Sex: Female
  Weight: 61 kg

DRUGS (3)
  1. MAGNEVIST [Suspect]
     Active Substance: GADOPENTETATE DIMEGLUMINE
     Indication: NUCLEAR MAGNETIC RESONANCE IMAGING BRAIN
     Dosage: UNK, 1 DOSE
     Route: 042
     Dates: start: 20060127, end: 20060127
  2. MAGNEVIST [Suspect]
     Active Substance: GADOPENTETATE DIMEGLUMINE
     Indication: ROAD TRAFFIC ACCIDENT
  3. IBUPROFEN. [Concomitant]
     Active Substance: IBUPROFEN

REACTIONS (58)
  - Paralysis [Recovered/Resolved]
  - Incoherent [Recovering/Resolving]
  - Dizziness postural [Recovered/Resolved]
  - Pain [None]
  - Cognitive disorder [None]
  - Adverse drug reaction [Recovered/Resolved]
  - Tremor [Recovered/Resolved]
  - Syncope [Recovered/Resolved]
  - Panic reaction [Recovered/Resolved]
  - Feeling drunk [Recovered/Resolved]
  - Blood potassium decreased [Unknown]
  - Erythema [None]
  - Blister [None]
  - Skin hyperpigmentation [None]
  - Hypertension [None]
  - Blood thyroid stimulating hormone increased [Unknown]
  - Sinus arrhythmia [Recovered/Resolved]
  - Muscular weakness [Recovered/Resolved]
  - Hyperventilation [Recovered/Resolved]
  - Seizure [None]
  - Oedema [None]
  - Thyroid mass [None]
  - Cervix disorder [None]
  - Spinal disorder [None]
  - Facial paralysis [Recovered/Resolved]
  - Hypotonia [Recovered/Resolved]
  - Gait disturbance [Recovered/Resolved]
  - Feeling abnormal [Recovered/Resolved]
  - Electrocardiogram ST segment abnormal [Recovered/Resolved]
  - Blood alkaline phosphatase decreased [Unknown]
  - Muscle spasms [None]
  - Central nervous system lesion [None]
  - Internal haemorrhage [None]
  - Hyperlipidaemia [None]
  - Eye disorder [Recovered/Resolved]
  - Aphasia [Recovered/Resolved]
  - Anaemia [None]
  - Visual field defect [None]
  - Abdominal adhesions [None]
  - Hypotension [None]
  - Muscle twitching [Recovered/Resolved]
  - Feeling hot [Recovered/Resolved]
  - Burning sensation [None]
  - Swelling [None]
  - Pain [None]
  - Bone pain [None]
  - Osteoarthritis [None]
  - Polyneuropathy [None]
  - Gadolinium deposition disease [None]
  - Blood pressure increased [Recovered/Resolved]
  - Dizziness [Recovered/Resolved]
  - Eye movement disorder [Recovered/Resolved]
  - Apparent death [None]
  - Asthenia [None]
  - Muscular weakness [None]
  - Dyspnoea [None]
  - Ileus [None]
  - Calcification of muscle [None]

NARRATIVE: CASE EVENT DATE: 2006
